FAERS Safety Report 13317567 (Version 1)
Quarter: 2017Q1

REPORT INFORMATION
  Report Type: Spontaneous
  Country: NL (occurrence: NL)
  Receive Date: 20170310
  Receipt Date: 20170310
  Transmission Date: 20170428
  Serious: Yes (Hospitalization)
  Sender: FDA-Public Use
  Company Number: NL-TEVA-745827ACC

PATIENT
  Age: 42 Year
  Sex: Female
  Weight: 121 kg

DRUGS (1)
  1. PANTOPRAZOL TEVA TABLET MSR 20MG [Suspect]
     Active Substance: PANTOPRAZOLE SODIUM
     Indication: DYSPEPSIA
     Dosage: GASTRO-RESISTANT TABLET
     Route: 048
     Dates: start: 20170216, end: 20170219

REACTIONS (4)
  - Headache [Recovering/Resolving]
  - Palpitations [Recovering/Resolving]
  - Throat tightness [Recovering/Resolving]
  - Chest pain [Recovering/Resolving]

NARRATIVE: CASE EVENT DATE: 20170219
